FAERS Safety Report 7227174-1 (Version None)
Quarter: 2011Q1

REPORT INFORMATION
  Report Type: 
  Country: None (occurrence: None)
  Receive Date: 20110114
  Receipt Date: 20110106
  Transmission Date: 20110831
  Serious: No
  Sender: FDA-Public Use
  Company Number: B0692965A

PATIENT

DRUGS (1)
  1. RELENZA [Suspect]
     Dosage: 20MG PER DAY

REACTIONS (1)
  - DRUG EXPOSURE VIA BREAST MILK [None]
